FAERS Safety Report 17422623 (Version 4)
Quarter: 2020Q2

REPORT INFORMATION
  Report Type: Report from Study
  Country: US (occurrence: US)
  Receive Date: 20200215
  Receipt Date: 20200609
  Transmission Date: 20200713
  Serious: No
  Sender: FDA-Public Use
  Company Number: NVSC2020US041171

PATIENT
  Sex: Female

DRUGS (1)
  1. GILENYA [Suspect]
     Active Substance: FINGOLIMOD HYDROCHLORIDE
     Indication: MULTIPLE SCLEROSIS
     Dosage: 0.5 MG, QD
     Route: 048
     Dates: start: 20200207

REACTIONS (10)
  - Hepatic enzyme increased [Unknown]
  - Eating disorder [Unknown]
  - Product dose omission [Unknown]
  - Depressed mood [Unknown]
  - Renal cyst [Unknown]
  - Anxiety [Unknown]
  - Visual impairment [Unknown]
  - Constipation [Unknown]
  - Fatigue [Unknown]
  - Asthenia [Unknown]
